FAERS Safety Report 7572308-2 (Version None)
Quarter: 2011Q2

REPORT INFORMATION
  Report Type: 
  Country: None (occurrence: None)
  Receive Date: 20110624
  Receipt Date: 20110615
  Transmission Date: 20111010
  Serious: Yes (Other)
  Sender: FDA-Public Use
  Company Number: PHHY2011US37503

PATIENT
  Sex: Male
  Weight: 117.91 kg

DRUGS (27)
  1. LEXAPRO [Concomitant]
     Dosage: 20 MG, QD
  2. CIALIS [Concomitant]
     Dosage: UNK UKN, PRN
  3. DETROL [Concomitant]
     Dosage: 2 MG, QD
  4. LAMICTAL [Concomitant]
     Dosage: 100 MG, QD
  5. GLYBURIDE [Concomitant]
     Dosage: 5 MG, UNK
  6. DEPLIN [Concomitant]
     Dosage: 15 MG, QD
  7. MELOXICAM [Concomitant]
     Dosage: 7.5 MG, BID
  8. CARBIDOPA + LEVODOPA [Concomitant]
     Dosage: 20-250 MG, 1 DF, TID
  9. LASIX [Concomitant]
     Dosage: 20 MG, QD
  10. SPIRONOLACTONE [Concomitant]
     Dosage: 25 MG, QD
  11. STALEVO 100 [Concomitant]
     Dosage: 100 MG, BID
  12. OXYCONTIN [Concomitant]
     Dosage: 10 MG, TID
  13. FINASTERIDE [Concomitant]
     Dosage: 5 MG, QD
  14. ABILIFY [Concomitant]
     Dosage: 15 MG, QD
  15. UROXATRAL [Concomitant]
     Dosage: 10 MG, QD
  16. GILENYA [Suspect]
     Indication: MULTIPLE SCLEROSIS
     Dosage: 0.5 MG, QD
     Route: 048
     Dates: start: 20110103
  17. PRAVASTATIN [Concomitant]
     Dosage: 80 MG, QD
  18. METAXALONE [Concomitant]
     Dosage: 400 MG, QID
  19. AMANTADINE HCL [Concomitant]
     Dosage: 100 MG, TID
  20. LORATADINE [Concomitant]
     Dosage: 10 MG, QD
  21. SENNA [Concomitant]
     Dosage: 8.6-50 MG, 2 DF, BID
  22. OXYTOCIN [Concomitant]
     Dosage: 10 MG, TID
  23. COMTAN [Concomitant]
     Dosage: 200 MG, QID
  24. VENESARIDE [Concomitant]
     Dosage: 5 MG, QD
  25. NEXIUM [Concomitant]
     Dosage: 40 MG, QD
  26. DESYREL [Concomitant]
     Dosage: 2 MG, QD
  27. ASCORBIC ACID [Concomitant]
     Dosage: 500 MG, QD

REACTIONS (1)
  - ANORGASMIA [None]
